FAERS Safety Report 12820984 (Version 5)
Quarter: 2017Q1

REPORT INFORMATION
  Report Type: Spontaneous
  Country: JP (occurrence: JP)
  Receive Date: 20161007
  Receipt Date: 20170214
  Transmission Date: 20170428
  Serious: Yes (Hospitalization)
  Sender: FDA-Public Use
  Company Number: JP-ABBVIE-16K-087-1743879-00

PATIENT
  Age: 71 Year
  Sex: Female
  Weight: 41.3 kg

DRUGS (2)
  1. HUMIRA [Suspect]
     Active Substance: ADALIMUMAB
     Indication: RHEUMATOID ARTHRITIS
     Route: 058
     Dates: start: 2014, end: 20160830
  2. METHOTREXATE. [Suspect]
     Active Substance: METHOTREXATE
     Indication: RHEUMATOID ARTHRITIS
     Route: 048
     Dates: start: 2014, end: 20160830

REACTIONS (4)
  - CSF cell count increased [Unknown]
  - Dysphagia [Recovered/Resolved]
  - Angiotensin converting enzyme decreased [Unknown]
  - Infection [Unknown]

NARRATIVE: CASE EVENT DATE: 20160920
